FAERS Safety Report 9557310 (Version 4)
Quarter: 2013Q4

REPORT INFORMATION
  Report Type: Spontaneous
  Country: US (occurrence: US)
  Receive Date: 20130926
  Receipt Date: 20131210
  Transmission Date: 20140711
  Serious: No
  Sender: FDA-Public Use
  Company Number: US-009507513-1309USA009246

PATIENT
  Sex: Female
  Weight: 106.12 kg

DRUGS (5)
  1. VICTRELIS [Suspect]
     Indication: HEPATITIS C
     Dosage: 800 MG, TID
     Route: 048
     Dates: start: 20130823
  2. REBETOL [Suspect]
     Indication: HEPATITIS C
     Dosage: UNK
     Route: 048
     Dates: start: 20130726
  3. PEGASYS [Suspect]
     Indication: HEPATITIS C
     Dosage: UNK
     Dates: start: 20130726
  4. ZOLOFT [Concomitant]
     Route: 048
  5. LORAZEPAM [Concomitant]

REACTIONS (17)
  - Emotional disorder [Unknown]
  - Eye discharge [Unknown]
  - Thinking abnormal [Unknown]
  - Crying [Unknown]
  - Gastrointestinal pain [Unknown]
  - Feeling abnormal [Unknown]
  - Visual acuity reduced [Unknown]
  - Gastrointestinal pain [Unknown]
  - Blood creatinine increased [Unknown]
  - Scratch [Unknown]
  - Abdominal pain [Unknown]
  - Abdominal discomfort [Unknown]
  - Weight decreased [Unknown]
  - Pyrexia [Unknown]
  - Rash generalised [Unknown]
  - Vomiting [Unknown]
  - Dry skin [Unknown]
